FAERS Safety Report 17961547 (Version 1)
Quarter: 2020Q2

REPORT INFORMATION
  Report Type: Report from Study
  Country: None (occurrence: US)
  Receive Date: 20200630
  Receipt Date: 20200630
  Transmission Date: 20200714
  Serious: No
  Sender: FDA-Public Use
  Company Number: US-BIOVITRUM-2019US4267

PATIENT
  Age: 12 Year
  Sex: Female

DRUGS (4)
  1. PRILOSEC [Concomitant]
     Active Substance: OMEPRAZOLE MAGNESIUM
  2. COLCHICINE. [Concomitant]
     Active Substance: COLCHICINE
  3. NAPROXEN. [Concomitant]
     Active Substance: NAPROXEN
  4. KINERET [Suspect]
     Active Substance: ANAKINRA
     Indication: PERICARDITIS
     Dosage: START DATE ALSO REPORTED AS 07NOV2019
     Route: 058
     Dates: start: 20191110

REACTIONS (6)
  - Diarrhoea [Unknown]
  - Off label use [Unknown]
  - Injection site pain [Unknown]
  - Injection site urticaria [Unknown]
  - Injection site rash [Unknown]
  - Injection site warmth [Unknown]

NARRATIVE: CASE EVENT DATE: 201911
